FAERS Safety Report 6942759-5 (Version None)
Quarter: 2010Q3

REPORT INFORMATION
  Report Type: 
  Country: None (occurrence: None)
  Receive Date: 20100826
  Receipt Date: 20100817
  Transmission Date: 20110219
  Serious: Yes (Hospitalization)
  Sender: FDA-Public Use
  Company Number: FR-PERRIGO-10FR012277

PATIENT
  Age: 94 Year
  Sex: Male

DRUGS (2)
  1. CLOBETASOL PROPIONATE RX 0.05% 9F0 [Suspect]
     Indication: PEMPHIGOID
     Dosage: GREATER THAN 210 GRAMS TOTAL DOSE
     Route: 061
  2. PREDNISONE [Concomitant]
     Indication: PRODUCT USED FOR UNKNOWN INDICATION
     Dosage: 30 MG, QD FOR 2 MONTHS
     Route: 048

REACTIONS (2)
  - ABSCESS [None]
  - CELLULITIS [None]
